FAERS Safety Report 5597608-7 (Version None)
Quarter: 2008Q1

REPORT INFORMATION
  Report Type: 
  Country: None (occurrence: None)
  Receive Date: 20080121
  Receipt Date: 20080114
  Transmission Date: 20080703
  Serious: Yes (Hospitalization)
  Sender: FDA-Public Use
  Company Number: B0504114A

PATIENT
  Age: 73 Year
  Sex: Female

DRUGS (5)
  1. CLAMOXYL [Suspect]
     Indication: ERYSIPELAS
     Route: 048
     Dates: start: 20070822, end: 20070828
  2. NOVATREX [Concomitant]
     Indication: RHEUMATOID ARTHRITIS
     Dosage: 10MG PER DAY
     Route: 048
     Dates: end: 20070830
  3. SPECIAFOLDINE [Concomitant]
     Dosage: 5MG WEEKLY
     Route: 048
     Dates: end: 20070830
  4. CORTANCYL [Concomitant]
     Indication: RHEUMATOID ARTHRITIS
     Dosage: 8MG PER DAY
     Route: 048
     Dates: end: 20070830
  5. OGAST [Concomitant]
     Indication: GASTRODUODENAL ULCER
     Dosage: 15MG PER DAY
     Route: 048

REACTIONS (6)
  - DEEP VEIN THROMBOSIS [None]
  - FALL [None]
  - PRURIGO [None]
  - RASH GENERALISED [None]
  - RASH PAPULAR [None]
  - URINARY TRACT INFECTION [None]
